FAERS Safety Report 4486355-0 (Version None)
Quarter: 2004Q4

REPORT INFORMATION
  Report Type: 
  Country: None (occurrence: None)
  Receive Date: 20041021
  Receipt Date: 20041005
  Transmission Date: 20050328
  Serious: No
  Sender: FDA-Public Use
  Company Number: A1200404961

PATIENT
  Age: 42 Year
  Sex: Male

DRUGS (5)
  1. PLAVIX [Suspect]
     Indication: ANGIOPLASTY
     Dosage: 75 MG QD, ORAL
     Route: 047
  2. PLAVIX [Suspect]
     Indication: MYOCARDIAL INFARCTION
     Dosage: 75 MG QD, ORAL
     Route: 047
  3. ELISOR- (PRAVASTATIN SODIUM)- TABLET- 40 MG [Suspect]
     Dosage: 40 MG QD , ORAL
     Route: 048
     Dates: start: 20040901, end: 20040925
  4. TENORMIN [Concomitant]
  5. ASPIRIN [Concomitant]

REACTIONS (2)
  - RHABDOMYOLYSIS [None]
  - TENDONITIS [None]
